FAERS Safety Report 13054141 (Version 1)
Quarter: 2016Q4

REPORT INFORMATION
  Report Type: Spontaneous
  Country: TR (occurrence: TR)
  Receive Date: 20161222
  Receipt Date: 20161222
  Transmission Date: 20170207
  Serious: Yes (Hospitalization)
  Sender: FDA-Public Use
  Company Number: TR-GE HEALTHCARE MEDICAL DIAGNOSTICS-OMPQ-PR-1612S-2361

PATIENT
  Age: 75 Year
  Sex: Female
  Weight: 85 kg

DRUGS (8)
  1. OMNIPAQUE [Suspect]
     Active Substance: IOHEXOL
     Indication: PRODUCT USED FOR UNKNOWN INDICATION
     Dosage: DOSE NOT REPORTED
     Route: 042
     Dates: start: 20161122, end: 20161122
  2. LEVOTIRON [Concomitant]
     Active Substance: LEVOTHYROXINE SODIUM
  3. OKSAPAR [Concomitant]
  4. MAGOSID [Concomitant]
  5. LEVEMIR [Concomitant]
     Active Substance: INSULIN DETEMIR
  6. PARKYN [Concomitant]
  7. OMNIPAQUE [Suspect]
     Active Substance: IOHEXOL
     Indication: DIAGNOSTIC PROCEDURE
  8. SANELOC [Concomitant]

REACTIONS (4)
  - Blister [Not Recovered/Not Resolved]
  - Pain [Not Recovered/Not Resolved]
  - Extravasation [Not Recovered/Not Resolved]
  - Chemical injury [Not Recovered/Not Resolved]

NARRATIVE: CASE EVENT DATE: 20161122
